FAERS Safety Report 5082391-4 (Version None)
Quarter: 2006Q3

REPORT INFORMATION
  Report Type: 
  Country: None (occurrence: None)
  Receive Date: 20060814
  Receipt Date: 20060731
  Transmission Date: 20061208
  Serious: Yes (Other)
  Sender: FDA-Public Use
  Company Number: 2006094798

PATIENT
  Age: 78 Year
  Sex: Male
  Weight: 79.3795 kg

DRUGS (13)
  1. CHANTIX [Suspect]
     Indication: SMOKING CESSATION THERAPY
     Dosage: 1 IN 1 D
     Dates: start: 20060701
  2. ARAVA [Concomitant]
  3. PACERONE [Concomitant]
  4. TOPROL-XL [Concomitant]
  5. LIPITOR [Concomitant]
  6. FUROSEMIDE [Concomitant]
  7. LOTREL [Concomitant]
  8. ACETYLSALICYLIC ACID SRT [Concomitant]
  9. ALLOPURINOL [Concomitant]
  10. IRON [Concomitant]
  11. COMBIVENT [Concomitant]
  12. CLONIDINE [Concomitant]
  13. SPIRIVA [Concomitant]

REACTIONS (3)
  - CONDITION AGGRAVATED [None]
  - DECREASED APPETITE [None]
  - WHEEZING [None]
